FAERS Safety Report 13285473 (Version 4)
Quarter: 2017Q3

REPORT INFORMATION
  Report Type: Report from Study
  Country: US (occurrence: US)
  Receive Date: 20170301
  Receipt Date: 20170913
  Transmission Date: 20171127
  Serious: Yes (Other)
  Sender: FDA-Public Use
  Company Number: PHEH2017US006087

PATIENT
  Sex: Male

DRUGS (1)
  1. ILARIS [Suspect]
     Active Substance: CANAKINUMAB
     Indication: FAMILIAL MEDITERRANEAN FEVER
     Dosage: 80 MG, EVERY 6 WEEKS
     Route: 058

REACTIONS (16)
  - Abdominal pain upper [Unknown]
  - Arthritis [Not Recovered/Not Resolved]
  - Lethargy [Unknown]
  - Fatigue [Unknown]
  - Pruritus [Unknown]
  - Respiratory tract infection [Unknown]
  - Condition aggravated [Unknown]
  - Hepatomegaly [Unknown]
  - Hepatic enzyme increased [Recovering/Resolving]
  - Rash erythematous [Unknown]
  - Bronchitis [Unknown]
  - Nasopharyngitis [Unknown]
  - Wheezing [Unknown]
  - Malaise [Unknown]
  - Pyrexia [Recovering/Resolving]
  - Lymphocyte count abnormal [Unknown]
